FAERS Safety Report 8176157-6 (Version None)
Quarter: 2012Q1

REPORT INFORMATION
  Report Type: 
  Country: None (occurrence: None)
  Receive Date: 20120301
  Receipt Date: 20120220
  Transmission Date: 20120608
  Serious: Yes (Other)
  Sender: FDA-Public Use
  Company Number: ZA-JNJFOC-20120210802

PATIENT
  Sex: Female

DRUGS (2)
  1. REVELLEX [Suspect]
     Indication: ARTHRITIS
     Route: 042
     Dates: start: 20111201
  2. REVELLEX [Suspect]
     Route: 042

REACTIONS (2)
  - DRUG INEFFECTIVE [None]
  - PSORIASIS [None]
